FAERS Safety Report 5824109-0 (Version None)
Quarter: 2008Q3

REPORT INFORMATION
  Report Type: 
  Country: None (occurrence: None)
  Receive Date: 20080728
  Receipt Date: 20080721
  Transmission Date: 20090109
  Serious: Yes (Other)
  Sender: FDA-Public Use
  Company Number: PHHY2008FR15035

PATIENT
  Sex: Male

DRUGS (2)
  1. LAMPRENE [Suspect]
     Indication: MYCOBACTERIAL INFECTION
     Dosage: 50 MG/DAY
  2. CLARITHROMYCIN [Concomitant]

REACTIONS (3)
  - ABDOMINAL PAIN [None]
  - CONSTIPATION [None]
  - GASTROINTESTINAL DISORDER [None]
